FAERS Safety Report 9494612 (Version 1)
Quarter: 2013Q3

REPORT INFORMATION
  Report Type: Spontaneous
  Country: IT (occurrence: IT)
  Receive Date: 20130903
  Receipt Date: 20130903
  Transmission Date: 20140515
  Serious: Yes (Hospitalization)
  Sender: FDA-Public Use
  Company Number: IT-PFIZER INC-2013250435

PATIENT
  Age: 85 Year
  Sex: Female

DRUGS (5)
  1. TIGECYCLINE [Suspect]
     Indication: BRONCHOPNEUMONIA
     Dosage: 50 MG/DAY
     Route: 042
     Dates: start: 20130810, end: 20130816
  2. PANTOPRAZOLE [Concomitant]
     Dosage: UNK
  3. PROMAZINE HYDROCHLORIDE [Concomitant]
     Dosage: UNK
  4. CALCIUM GLUCONATE [Concomitant]
     Dosage: UNK
  5. POTASSIUM CANRENOATE [Concomitant]
     Dosage: UNK

REACTIONS (1)
  - Agranulocytosis [Not Recovered/Not Resolved]
